FAERS Safety Report 9696815 (Version 2)
Quarter: 2014Q2

REPORT INFORMATION
  Report Type: Spontaneous
  Country: GB (occurrence: GB)
  Receive Date: 20131119
  Receipt Date: 20140513
  Transmission Date: 20141212
  Serious: Yes (Disabling, Other)
  Sender: FDA-Public Use
  Company Number: PHHY2013GB130067

PATIENT
  Age: 47 Year
  Sex: Male

DRUGS (5)
  1. SERTRALINE [Suspect]
     Dosage: 200 MG
     Route: 048
  2. THYROXINE [Interacting]
     Dosage: 300 UG
     Route: 048
  3. NAPROXEN [Concomitant]
  4. LANSOPRAZOLE [Concomitant]
  5. FOLIC ACID [Concomitant]

REACTIONS (1)
  - Inhibitory drug interaction [Unknown]
